FAERS Safety Report 9410350 (Version 1)
Quarter: 2013Q3

REPORT INFORMATION
  Report Type: Spontaneous
  Country: US (occurrence: None)
  Receive Date: 20130718
  Receipt Date: 20130718
  Transmission Date: 20140515
  Serious: Yes (Hospitalization)
  Sender: FDA-Public Use
  Company Number: None

PATIENT
  Age: 70 Year
  Sex: Female

DRUGS (1)
  1. NEULASTA 6MG AMGEN [Suspect]
     Indication: UTERINE CANCER
     Dosage: Q21DAYS
     Route: 058
     Dates: start: 201201, end: 201307

REACTIONS (2)
  - Renal failure [None]
  - General physical health deterioration [None]
